FAERS Safety Report 4568035-6 (Version None)
Quarter: 2005Q1

REPORT INFORMATION
  Report Type: 
  Country: None (occurrence: None)
  Receive Date: 20050202
  Receipt Date: 20050126
  Transmission Date: 20050727
  Serious: Yes (Hospitalization, Other)
  Sender: FDA-Public Use
  Company Number: 200510646US

PATIENT
  Age: 68 Year
  Sex: Male

DRUGS (7)
  1. LOVENOX [Suspect]
     Indication: KNEE ARTHROPLASTY
     Dosage: DOSE: UNK
     Dates: start: 20021101, end: 20021105
  2. ARIXTRA [Concomitant]
     Dosage: DOSE: UNK
     Dates: start: 20021101
  3. ARGATROBAN [Concomitant]
     Dosage: DOSE: UNK
     Dates: start: 20021101
  4. COUMADIN [Concomitant]
     Dosage: DOSE: UNK
     Dates: end: 20021101
  5. LANOXIN [Concomitant]
     Dosage: DOSE: UNK
  6. LOPID [Concomitant]
     Dosage: DOSE: UNK
  7. IRON [Concomitant]
     Dosage: DOSE: UNK

REACTIONS (12)
  - AMNESIA [None]
  - APHTHOUS STOMATITIS [None]
  - CARDIAC ARREST [None]
  - CEREBROVASCULAR ACCIDENT [None]
  - HYPOAESTHESIA [None]
  - HYPOAESTHESIA ORAL [None]
  - MYOCARDIAL INFARCTION [None]
  - PAIN IN EXTREMITY [None]
  - PLATELET COUNT DECREASED [None]
  - SKIN DISCOLOURATION [None]
  - THROMBOSIS [None]
  - TOE AMPUTATION [None]
